FAERS Safety Report 17852488 (Version 1)
Quarter: 2020Q2

REPORT INFORMATION
  Report Type: Spontaneous
  Country: US (occurrence: US)
  Receive Date: 20200602
  Receipt Date: 20200602
  Transmission Date: 20200714
  Serious: No
  Sender: FDA-Public Use
  Company Number: US-ARBOR PHARMACEUTICALS, LLC-US-2019ARB000787

PATIENT
  Age: 62 Year
  Sex: Male

DRUGS (3)
  1. HORIZANT [Suspect]
     Active Substance: GABAPENTIN ENACARBIL
     Indication: NEURALGIA
     Dosage: 300 MG, BID
     Route: 048
  2. NAPROXEN. [Concomitant]
     Active Substance: NAPROXEN
     Indication: ARTHRITIS
  3. NAPROXEN. [Concomitant]
     Active Substance: NAPROXEN
     Indication: NEURALGIA
     Dosage: 500 MG, BID

REACTIONS (3)
  - Off label use [Unknown]
  - Skin lesion [Not Recovered/Not Resolved]
  - Vertigo [Recovering/Resolving]

NARRATIVE: CASE EVENT DATE: 20181111
